FAERS Safety Report 18334453 (Version 2)
Quarter: 2020Q4

REPORT INFORMATION
  Report Type: Other
  Country: CA (occurrence: CA)
  Receive Date: 20201001
  Receipt Date: 20201020
  Transmission Date: 20210113
  Serious: Yes (Other)
  Sender: FDA-Public Use
  Company Number: CA-ROCHE-2685754

PATIENT

DRUGS (2)
  1. MIRVETUXIMAB SORAVTANSINE [Suspect]
     Active Substance: MIRVETUXIMAB SORAVTANSINE
     Indication: OVARIAN CANCER
     Route: 065
  2. BEVACIZUMAB. [Suspect]
     Active Substance: BEVACIZUMAB
     Indication: OVARIAN CANCER
     Route: 065

REACTIONS (14)
  - Alanine aminotransferase increased [Unknown]
  - Fatigue [Unknown]
  - Vision blurred [Unknown]
  - Thrombocytopenia [Unknown]
  - Dry eye [Unknown]
  - Epistaxis [Unknown]
  - Nausea [Unknown]
  - Hypertension [Unknown]
  - Pneumonitis [Unknown]
  - Diarrhoea [Unknown]
  - Small intestinal obstruction [Unknown]
  - Aspartate aminotransferase increased [Unknown]
  - Vomiting [Unknown]
  - Neutropenia [Unknown]
